FAERS Safety Report 14964493 (Version 2)
Quarter: 2018Q2

REPORT INFORMATION
  Report Type: Spontaneous
  Country: US (occurrence: US)
  Receive Date: 20180601
  Receipt Date: 20180628
  Transmission Date: 20180711
  Serious: Yes (Hospitalization)
  Sender: FDA-Public Use
  Company Number: US-VIFOR (INTERNATIONAL) INC.-VIT-2018-05114

PATIENT
  Age: 72 Year
  Sex: Male

DRUGS (17)
  1. OXYCODONE HYDROCHLORIDE. [Concomitant]
     Active Substance: OXYCODONE HYDROCHLORIDE
  2. TYLENOL [Concomitant]
     Active Substance: ACETAMINOPHEN
  3. TORASEMIDE [Concomitant]
     Active Substance: TORSEMIDE
  4. TRAMADOL HYDROCHLORIDE. [Concomitant]
     Active Substance: TRAMADOL HYDROCHLORIDE
  5. CARVEDILOL. [Concomitant]
     Active Substance: CARVEDILOL
  6. UBIQUINOL [Concomitant]
     Active Substance: UBIQUINOL
  7. LIDOCAINE. [Concomitant]
     Active Substance: LIDOCAINE
  8. DOXAZOSIN MESILATE [Concomitant]
     Active Substance: DOXAZOSIN MESYLATE
  9. PRAVASTATIN SODIUM. [Concomitant]
     Active Substance: PRAVASTATIN SODIUM
  10. VELTASSA [Suspect]
     Active Substance: PATIROMER
     Indication: HYPERKALAEMIA
     Route: 048
     Dates: start: 20180405
  11. COENZYME Q10 [Concomitant]
     Active Substance: UBIDECARENONE
  12. NIFEDIPINE. [Concomitant]
     Active Substance: NIFEDIPINE
  13. LEVOTHYROXINE SODIUM. [Concomitant]
     Active Substance: LEVOTHYROXINE SODIUM
  14. LANTUS SOLOSTAR [Concomitant]
     Active Substance: INSULIN GLARGINE
  15. MIRALAX [Concomitant]
     Active Substance: POLYETHYLENE GLYCOL 3350
  16. ACETYLSALICYLIC ACID [Concomitant]
     Active Substance: ASPIRIN
  17. VELTASSA [Suspect]
     Active Substance: PATIROMER
     Indication: CHRONIC KIDNEY DISEASE
     Route: 048
     Dates: start: 2018

REACTIONS (3)
  - Spinal operation [Unknown]
  - Constipation [Unknown]
  - Off label use [Unknown]

NARRATIVE: CASE EVENT DATE: 2018
